FAERS Safety Report 15504228 (Version 1)
Quarter: 2018Q4

REPORT INFORMATION
  Report Type: Spontaneous
  Country: JP (occurrence: JP)
  Receive Date: 20181016
  Receipt Date: 20181016
  Transmission Date: 20190205
  Serious: Yes (Other)
  Sender: FDA-Public Use
  Company Number: JP-SUN PHARMACEUTICAL INDUSTRIES LTD-2018RR-187674

PATIENT
  Age: 55 Year
  Sex: Male

DRUGS (8)
  1. OTERACIL [Suspect]
     Active Substance: OTERACIL
     Indication: PANCREATIC CARCINOMA METASTATIC
     Dosage: S-1 THERAPY
     Route: 065
  2. OTERACIL [Suspect]
     Active Substance: OTERACIL
     Dosage: 120 MG/BODY, 2W/3W, S-1 THERAPY
     Route: 065
  3. TEGAFUR [Suspect]
     Active Substance: TEGAFUR
     Dosage: 120 MG/BODY, 2W/3W, S-1 THERAPY
     Route: 065
  4. GIMERACIL [Suspect]
     Active Substance: GIMERACIL
     Indication: PANCREATIC CARCINOMA METASTATIC
     Dosage: S-1 THERAPY
     Route: 065
  5. GEMCITABINE [Suspect]
     Active Substance: GEMCITABINE\GEMCITABINE HYDROCHLORIDE
     Dosage: 1000 MG/M2, 2 TIMES/3W
     Route: 065
  6. GEMCITABINE [Suspect]
     Active Substance: GEMCITABINE\GEMCITABINE HYDROCHLORIDE
     Indication: PANCREATIC CARCINOMA METASTATIC
     Dosage: UNK
     Route: 065
  7. TEGAFUR [Suspect]
     Active Substance: TEGAFUR
     Indication: PANCREATIC CARCINOMA METASTATIC
     Dosage: S-1 THERAPY
     Route: 065
  8. GIMERACIL [Suspect]
     Active Substance: GIMERACIL
     Dosage: 120 MG/BODY, 2W/3W, S-1 THERAPY
     Route: 065

REACTIONS (3)
  - Myositis [Unknown]
  - Disease progression [Unknown]
  - Metastases to nervous system [Unknown]
